FAERS Safety Report 22919448 (Version 2)
Quarter: 2023Q4

REPORT INFORMATION
  Report Type: Report from Study
  Country: JP (occurrence: JP)
  Receive Date: 20230908
  Receipt Date: 20231120
  Transmission Date: 20240110
  Serious: Yes (Other)
  Sender: FDA-Public Use
  Company Number: JP-TAKEDA-2023TJP011627

PATIENT
  Age: 43 Year
  Sex: Male
  Weight: 68 kg

DRUGS (1)
  1. LEUPLIN [Suspect]
     Active Substance: LEUPROLIDE ACETATE
     Indication: Bulbospinal muscular atrophy congenital
     Dosage: Q3MONTHS
     Route: 058
     Dates: start: 20180312, end: 20190218

REACTIONS (6)
  - Diabetes mellitus [Recovering/Resolving]
  - Penile size reduced [Recovered/Resolved]
  - Dysuria [Recovered/Resolved]
  - Male sexual dysfunction [Unknown]
  - Oedema peripheral [Recovered/Resolved]
  - Malaise [Recovered/Resolved]

NARRATIVE: CASE EVENT DATE: 20190513
